FAERS Safety Report 7353183-8 (Version None)
Quarter: 2011Q1

REPORT INFORMATION
  Report Type: 
  Country: None (occurrence: None)
  Receive Date: 20110310
  Receipt Date: 20110310
  Transmission Date: 20110831
  Serious: Yes (Other)
  Sender: FDA-Public Use
  Company Number: None

PATIENT
  Age: 7 Year
  Sex: Female
  Weight: 27.7 kg

DRUGS (3)
  1. DIPHENHYDRAMINE [Concomitant]
  2. GAMMAGARD LIQUID [Suspect]
     Indication: THROMBOCYTOPENIA
     Dosage: 10G EVERY THREE WEEKS IV DRIP
     Route: 041
     Dates: start: 20091001
  3. ACETAMINOPHEN [Concomitant]

REACTIONS (3)
  - LETHARGY [None]
  - HEADACHE [None]
  - NAUSEA [None]
